FAERS Safety Report 5210105-3 (Version None)
Quarter: 2006Q4

REPORT INFORMATION
  Report Type: 
  Country: None (occurrence: None)
  Receive Date: 20061103
  Receipt Date: 20060920
  Transmission Date: 20070319
  Serious: No
  Sender: FDA-Public Use
  Company Number: FACT0600355

PATIENT
  Age: 48 Year
  Sex: Female
  Weight: 77.1 kg

DRUGS (4)
  1. FACTIVE [Suspect]
     Indication: RESPIRATORY TRACT INFECTION BACTERIAL
     Dosage: 320 MG, QD, ORAL
     Route: 048
     Dates: start: 20060912, end: 20060918
  2. ADVAIR DISKUS 100/50 [Concomitant]
  3. ALBUTEROL [Concomitant]
  4. GUAIFENESIN [Concomitant]

REACTIONS (1)
  - RASH GENERALISED [None]
